FAERS Safety Report 16714546 (Version 2)
Quarter: 2019Q3

REPORT INFORMATION
  Report Type: Spontaneous
  Country: US (occurrence: US)
  Receive Date: 20190819
  Receipt Date: 20190924
  Transmission Date: 20191004
  Serious: No
  Sender: FDA-Public Use
  Company Number: US-AMGEN-USASP2019128256

PATIENT
  Age: 79 Year
  Sex: Female
  Weight: 59 kg

DRUGS (1)
  1. REPATHA [Suspect]
     Active Substance: EVOLOCUMAB
     Indication: BLOOD CHOLESTEROL ABNORMAL
     Dosage: 140 MILLIGRAM, Q2WK
     Route: 065
     Dates: start: 20190724

REACTIONS (1)
  - Wrong technique in product usage process [Unknown]

NARRATIVE: CASE EVENT DATE: 20190808
